FAERS Safety Report 6822106-X (Version None)
Quarter: 2010Q3

REPORT INFORMATION
  Report Type: 
  Country: None (occurrence: None)
  Receive Date: 20100708
  Receipt Date: 20100629
  Transmission Date: 20110219
  Serious: Yes (Hospitalization)
  Sender: FDA-Public Use
  Company Number: IT-JNJFOC-20100608607

PATIENT
  Sex: Male

DRUGS (8)
  1. LEVOFLOXACIN [Suspect]
     Indication: BRONCHOPNEUMONIA
     Route: 048
  2. COUMADIN [Suspect]
     Indication: ATRIAL FIBRILLATION
     Route: 048
  3. BISOPROLOL [Concomitant]
     Route: 065
  4. RAMIPRIL [Concomitant]
     Route: 065
  5. AMIODARONE HCL [Concomitant]
     Route: 065
  6. DIGOXIN [Concomitant]
     Route: 065
  7. METHIMAZOLE [Concomitant]
     Route: 065
  8. LASIX [Concomitant]
     Route: 065

REACTIONS (1)
  - HAEMATOMA [None]
